FAERS Safety Report 6729995-8 (Version None)
Quarter: 2010Q2

REPORT INFORMATION
  Report Type: 
  Country: None (occurrence: None)
  Receive Date: 20100518
  Receipt Date: 20100507
  Transmission Date: 20101027
  Serious: Yes (Other)
  Sender: FDA-Public Use
  Company Number: FR-JNJFOC-20100503699

PATIENT
  Age: 39 Year
  Sex: Male

DRUGS (6)
  1. REMICADE [Suspect]
     Indication: DRUG USE FOR UNKNOWN INDICATION
     Route: 042
  2. REMICADE [Suspect]
     Route: 042
  3. REMICADE [Suspect]
     Route: 042
  4. REMICADE [Suspect]
     Route: 042
  5. REMICADE [Suspect]
     Route: 042
  6. REMICADE [Suspect]
     Route: 042

REACTIONS (6)
  - ANAPHYLACTIC REACTION [None]
  - ASTHENIA [None]
  - INFUSION RELATED REACTION [None]
  - PRURITUS [None]
  - THROAT IRRITATION [None]
  - VISION BLURRED [None]
